FAERS Safety Report 7603140-9 (Version None)
Quarter: 2011Q2

REPORT INFORMATION
  Report Type: 
  Country: None (occurrence: None)
  Receive Date: 20110630
  Receipt Date: 20110620
  Transmission Date: 20111010
  Serious: Yes (Hospitalization, Other)
  Sender: FDA-Public Use
  Company Number: 2011SP028952

PATIENT
  Age: 42 Year
  Sex: Female

DRUGS (2)
  1. PREGNYL [Suspect]
     Indication: LUTEAL PHASE DEFICIENCY
     Dosage: 1500 IU; IM
     Route: 030
  2. PUREGON (FOLLITROPIN BETA /01348901/) [Suspect]
     Indication: ASSISTED FERTILISATION
     Dosage: 450 IU; QD

REACTIONS (5)
  - ASCITES [None]
  - OLIGURIA [None]
  - OVARIAN ENLARGEMENT [None]
  - OVARIAN HYPERSTIMULATION SYNDROME [None]
  - CEREBRAL VENOUS THROMBOSIS [None]
